FAERS Safety Report 22026292 (Version 12)
Quarter: 2024Q4

REPORT INFORMATION
  Report Type: Spontaneous
  Country: US (occurrence: US)
  Receive Date: 20230223
  Receipt Date: 20241107
  Transmission Date: 20250115
  Serious: Yes (Life-Threatening, Hospitalization, Other)
  Sender: UNITED THERAPEUTICS
  Company Number: US-UNITED THERAPEUTICS-UNT-2023-004974

PATIENT
  Age: 59 Year
  Sex: Male
  Weight: 74.83 kg

DRUGS (11)
  1. REMODULIN [Suspect]
     Active Substance: TREPROSTINIL
     Indication: Pulmonary arterial hypertension
     Dosage: 0.007 ?G/KG, (SELF-FILLED WITH 2.9ML PER CASSETTE AT PUMP RATE 34 MCL/HOUR) CONTINUING
  2. REMODULIN [Suspect]
     Active Substance: TREPROSTINIL
     Dosage: UNK, CONTINUING (SELF FILL CASSETTE WITH 3 ML; RATE OF 36 MCL PER HOUR)
  3. REMODULIN [Suspect]
     Active Substance: TREPROSTINIL
     Dosage: 0.0085 ?G/KG, CONTINUING
  4. REMODULIN [Suspect]
     Active Substance: TREPROSTINIL
     Dosage: 0.0075 ?G/KG, (SELF-FILLED WITH 2.9ML PER CASSETTE AT PUMP RATE 34 MCL/HOUR) CONTINUING
  5. REMODULIN [Suspect]
     Active Substance: TREPROSTINIL
     Dosage: UNK (SELF-FILLED CASSETTE WITH 3 ML; AT A PUMP RATE OF 36 MCL PER HOUR), CONTINUING
  6. REMODULIN [Suspect]
     Active Substance: TREPROSTINIL
     Dosage: 0.0075 ?G/KG (SELF-FILLED WITH 3ML PER CASSETTE, AT A PUMP RATE OF 46 MCL/HOUR), CONTINUING
  7. REMODULIN [Suspect]
     Active Substance: TREPROSTINIL
     Dosage: 0.0095 ?G/KG, (SELF-FILLED WITH 3ML PER CASSETTE AT PUMP RATE 46 MCL/HOUR) CONTINUING
  8. REMODULIN [Suspect]
     Active Substance: TREPROSTINIL
     Dosage: UNK (AT A PUMP RATE OF 48 MCL PER HOUR), CONTINUING
  9. REMODULIN [Suspect]
     Active Substance: TREPROSTINIL
     Dosage: UNK, CONTINUING
  10. UPTRAVI [Concomitant]
     Active Substance: SELEXIPAG
     Indication: Pulmonary arterial hypertension
     Dosage: 1600 ?G, BID
  11. TADALAFIL [Concomitant]
     Active Substance: TADALAFIL
     Indication: Product used for unknown indication
     Dosage: UNK

REACTIONS (28)
  - Acute respiratory failure [Unknown]
  - Hypervolaemia [Unknown]
  - Pleural effusion [Unknown]
  - Oxygen saturation decreased [Unknown]
  - Dizziness [Unknown]
  - Hypotension [Unknown]
  - Diarrhoea [Unknown]
  - Myalgia [Unknown]
  - Fatigue [Unknown]
  - Chest discomfort [Unknown]
  - Memory impairment [Unknown]
  - Irritability [Unknown]
  - Malaise [Unknown]
  - Device issue [Recovered/Resolved]
  - Device difficult to use [Unknown]
  - Device issue [Recovered/Resolved]
  - Device wireless communication issue [Recovered/Resolved]
  - Device leakage [Recovered/Resolved]
  - Device leakage [Recovered/Resolved]
  - Device wireless communication issue [Recovered/Resolved]
  - Device issue [Recovered/Resolved]
  - Device issue [Recovered/Resolved]
  - Device issue [Recovered/Resolved]
  - Device occlusion [Unknown]
  - Device wireless communication issue [Recovered/Resolved]
  - Device infusion issue [Recovered/Resolved]
  - Device infusion issue [Recovered/Resolved]
  - Device issue [Unknown]

NARRATIVE: CASE EVENT DATE: 20230201
